FAERS Safety Report 26190880 (Version 1)
Quarter: 2025Q4

REPORT INFORMATION
  Report Type: Spontaneous
  Country: US (occurrence: None)
  Receive Date: 20251222
  Receipt Date: 20251222
  Transmission Date: 20260118
  Serious: Yes (Death)
  Sender: FDA-CTU
  Company Number: None

PATIENT
  Age: 60 Year
  Sex: Female

DRUGS (1)
  1. LITHIUM [Suspect]
     Active Substance: LITHIUM
     Indication: Mood swings
     Dates: end: 20190710

REACTIONS (2)
  - Hepatic cirrhosis [None]
  - Drug-induced liver injury [None]

NARRATIVE: CASE EVENT DATE: 20190710
